FAERS Safety Report 7807585-3 (Version None)
Quarter: 2011Q4

REPORT INFORMATION
  Report Type: 
  Country: None (occurrence: None)
  Receive Date: 20111011
  Receipt Date: 20111004
  Transmission Date: 20120403
  Serious: Yes (Hospitalization)
  Sender: FDA-Public Use
  Company Number: US-B.I. PHARMACEUTICALS,INC./RIDGEFIELD-2006-BP-05725BP

PATIENT
  Sex: Female

DRUGS (10)
  1. COMBIVENT [Suspect]
     Indication: CHRONIC OBSTRUCTIVE PULMONARY DISEASE
     Dosage: 8 PUF
     Route: 055
     Dates: start: 20030101
  2. FORADIL [Concomitant]
  3. FLOVENT [Concomitant]
     Indication: CHRONIC OBSTRUCTIVE PULMONARY DISEASE
  4. XOPENEX [Concomitant]
     Indication: ASTHMA
  5. COMBIVENT [Suspect]
     Indication: ASTHMA
  6. SINGULAIR [Concomitant]
     Indication: SEASONAL ALLERGY
  7. FOSAMAX [Concomitant]
     Indication: OSTEOPOROSIS
  8. ASMANEX TWISTHALER [Concomitant]
  9. PREDNISONE [Concomitant]
  10. SYMBICORT [Concomitant]
     Indication: CHRONIC OBSTRUCTIVE PULMONARY DISEASE

REACTIONS (14)
  - DYSPNOEA [None]
  - BURNING SENSATION [None]
  - INFLAMMATION [None]
  - ORAL PAIN [None]
  - DRUG EFFECT DECREASED [None]
  - DRUG INEFFECTIVE [None]
  - ORAL FUNGAL INFECTION [None]
  - PNEUMONIA [None]
  - RESPIRATORY TRACT IRRITATION [None]
  - PULMONARY CONGESTION [None]
  - PULMONARY FUNCTION TEST DECREASED [None]
  - LUNG DISORDER [None]
  - OROPHARYNGEAL PAIN [None]
  - EXERCISE TOLERANCE DECREASED [None]
